FAERS Safety Report 24345983 (Version 1)
Quarter: 2024Q3

REPORT INFORMATION
  Report Type: Spontaneous
  Country: CN (occurrence: CN)
  Receive Date: 20240920
  Receipt Date: 20240920
  Transmission Date: 20241016
  Serious: Yes (Other)
  Sender: AZURITY PHARMACEUTICALS
  Company Number: CN-AZURITY PHARMACEUTICALS, INC.-AZR202409-000626

PATIENT
  Age: 61 Year
  Sex: Male

DRUGS (1)
  1. METHYLPREDNISOLONE ACETATE [Suspect]
     Active Substance: METHYLPREDNISOLONE ACETATE
     Indication: Sympathetic ophthalmia
     Dosage: 1 GRAM, UNKNOWN
     Route: 042

REACTIONS (3)
  - Necrotising retinitis [Recovering/Resolving]
  - Eye infection viral [Recovering/Resolving]
  - Varicella zoster virus infection [Recovering/Resolving]
